FAERS Safety Report 19929503 (Version 2)
Quarter: 2022Q1

REPORT INFORMATION
  Report Type: Spontaneous
  Country: CA (occurrence: CA)
  Receive Date: 20211007
  Receipt Date: 20220202
  Transmission Date: 20220424
  Serious: Yes (Other)
  Sender: FDA-Public Use
  Company Number: CA-PFIZER INC-2018092514

PATIENT
  Age: 64 Year
  Sex: Female

DRUGS (14)
  1. XELJANZ [Suspect]
     Active Substance: TOFACITINIB CITRATE
     Indication: Rheumatoid arthritis
     Dosage: 5 MG, TWICE A DAY
     Route: 048
     Dates: start: 20180220, end: 201903
  2. XELJANZ [Suspect]
     Active Substance: TOFACITINIB CITRATE
     Dosage: 5 MG, TWICE A DAY
     Route: 048
     Dates: start: 201804, end: 201909
  3. GOLD [Concomitant]
     Active Substance: GOLD
     Indication: Rheumatoid arthritis
     Dosage: 25 MG, WEEKLY
  4. DICLOFENAC [Concomitant]
     Active Substance: DICLOFENAC
     Dosage: UNK UNK, AS NEEDED (20% COMPOUND CREA; PRN)
     Route: 061
  5. FLOVENT [Concomitant]
     Active Substance: FLUTICASONE PROPIONATE
     Dosage: UNK UNK, ONCE A DAY
  6. VENTOLIN [Concomitant]
     Active Substance: ALBUTEROL SULFATE
     Dosage: UNK UNK, 1X/DAY
  7. SULFASALAZINE [Concomitant]
     Active Substance: SULFASALAZINE
     Indication: Rheumatoid arthritis
     Dosage: UNK
     Dates: start: 2018
  8. CORTISONE [Concomitant]
     Active Substance: CORTISONE
     Indication: Acne
     Dosage: UNK
     Route: 061
  9. PREDNICORT [PREDNISONE] [Concomitant]
     Dosage: UNK
  10. GABAPENTIN [Concomitant]
     Active Substance: GABAPENTIN
     Dosage: UNK
  11. LYRICA [Concomitant]
     Active Substance: PREGABALIN
     Dosage: UNK
  12. IBUPROFEN [Concomitant]
     Active Substance: IBUPROFEN
     Dosage: UNK
  13. CARBAMAZEPINE [Concomitant]
     Active Substance: CARBAMAZEPINE
     Dosage: UNK
  14. VIT D [VITAMIN D NOS] [Concomitant]
     Dosage: UNK

REACTIONS (9)
  - Rotator cuff syndrome [Unknown]
  - Drug ineffective [Not Recovered/Not Resolved]
  - Therapeutic product effect incomplete [Not Recovered/Not Resolved]
  - Pustule [Not Recovered/Not Resolved]
  - Acne [Unknown]
  - Headache [Unknown]
  - Illness [Unknown]
  - Insomnia [Unknown]
  - Infection [Unknown]
